FAERS Safety Report 9056496 (Version 3)
Quarter: 2013Q3

REPORT INFORMATION
  Report Type: Report from Study
  Country: DE (occurrence: DE)
  Receive Date: 20130204
  Receipt Date: 20130809
  Transmission Date: 20140515
  Serious: Yes (Hospitalization)
  Sender: FDA-Public Use
  Company Number: DE-UCBSA-077249

PATIENT
  Sex: Female
  Weight: 60 kg

DRUGS (13)
  1. CIMZIA [Suspect]
     Indication: RHEUMATOID ARTHRITIS
     Route: 058
     Dates: start: 20120417, end: 20120809
  2. PREDNISOLONE [Concomitant]
     Indication: RHEUMATOID ARTHRITIS
     Dosage: HIGH DOSE 20-30 MG/DAY
     Route: 048
     Dates: start: 201203
  3. PREDNISOLONE [Concomitant]
     Indication: RHEUMATOID ARTHRITIS
     Route: 048
  4. IBUPROFEN [Concomitant]
     Indication: RHEUMATOID ARTHRITIS
  5. MTX [Concomitant]
     Indication: RHEUMATOID ARTHRITIS
     Dosage: DOSE: 7.5MG QS
     Route: 058
     Dates: start: 200508
  6. MTX [Concomitant]
     Indication: RHEUMATOID ARTHRITIS
     Route: 058
  7. DEKRISTOL [Concomitant]
     Indication: OSTEOPOROSIS
     Dosage: DOSE: 20000IE Q2S
  8. OMEPRAZOLE [Concomitant]
     Indication: GASTRITIS
     Route: 048
  9. ZOLPIDEM [Concomitant]
     Indication: DEPRESSION
     Dosage: DOSE: 10MG
     Dates: start: 200912
  10. ZOLPIDEM [Concomitant]
     Indication: SLEEP DISORDER
     Dosage: DOSE: 10MG
     Dates: start: 200912
  11. DIAZEPAM [Concomitant]
     Indication: DEPRESSION
     Dosage: DOSE: 5MG PRN
     Dates: start: 200912
  12. DIAZEPAM [Concomitant]
     Indication: SLEEP DISORDER
     Dosage: DOSE: 5MG PRN
     Dates: start: 200912
  13. NOVAMINSULFONE [Concomitant]
     Indication: RHEUMATOID ARTHRITIS
     Route: 048

REACTIONS (1)
  - Pneumonia [Recovered/Resolved]
